FAERS Safety Report 14277529 (Version 1)
Quarter: 2017Q4

REPORT INFORMATION
  Report Type: Report from Study
  Country: ES (occurrence: ES)
  Receive Date: 20171212
  Receipt Date: 20171212
  Transmission Date: 20180321
  Serious: Yes (Other)
  Sender: FDA-Public Use
  Company Number: ES-TAKEDA-2017MPI011170

PATIENT
  Age: 7 Decade
  Sex: Male

DRUGS (4)
  1. VELCADE [Suspect]
     Active Substance: BORTEZOMIB
     Indication: PLASMA CELL MYELOMA
     Dosage: UNK
     Route: 065
     Dates: start: 201506, end: 201601
  2. DARZALEX [Suspect]
     Active Substance: DARATUMUMAB
     Dosage: UNK, MONTHLY
     Route: 065
     Dates: start: 201601
  3. DEXAMETHASONE. [Suspect]
     Active Substance: DEXAMETHASONE
     Indication: PLASMA CELL MYELOMA
     Dosage: UNK
     Route: 065
     Dates: start: 201507, end: 201601
  4. DARZALEX [Suspect]
     Active Substance: DARATUMUMAB
     Indication: PLASMA CELL MYELOMA
     Dosage: UNK
     Route: 065
     Dates: start: 201507, end: 201601

REACTIONS (2)
  - Plasma cell myeloma [Unknown]
  - Prostatectomy [Unknown]

NARRATIVE: CASE EVENT DATE: 201708
